FAERS Safety Report 6862453-9 (Version None)
Quarter: 2010Q3

REPORT INFORMATION
  Report Type: 
  Country: None (occurrence: None)
  Receive Date: 20100716
  Receipt Date: 20100630
  Transmission Date: 20110219
  Serious: Yes (Hospitalization)
  Sender: FDA-Public Use
  Company Number: FKO201000273

PATIENT
  Age: 56 Year
  Sex: Female

DRUGS (5)
  1. FLUOROURACIL [Suspect]
     Indication: PRODUCT USED FOR UNKNOWN INDICATION
     Dosage: 3300 MG
     Dates: start: 20100119, end: 20100318
  2. IRINOTECAN HCL [Suspect]
     Indication: PRODUCT USED FOR UNKNOWN INDICATION
     Dosage: 300 MG;
     Dates: start: 20100119, end: 20100316
  3. DECADRON [Concomitant]
  4. LEUCOVORIN CALCIUM [Concomitant]
  5. LIMICAN (ALIZAPRIDE HYDROCHLORIDE) [Concomitant]

REACTIONS (6)
  - DECREASED APPETITE [None]
  - DIARRHOEA [None]
  - HYPOKALAEMIA [None]
  - LEUKOPENIA [None]
  - NAUSEA [None]
  - VOMITING [None]
